FAERS Safety Report 9838210 (Version 2)
Quarter: 2014Q1

REPORT INFORMATION
  Report Type: Spontaneous
  Country: US (occurrence: US)
  Receive Date: 20140123
  Receipt Date: 20140127
  Transmission Date: 20141002
  Serious: Yes (Other)
  Sender: FDA-Public Use
  Company Number: US-PFIZER INC-2014019820

PATIENT
  Age: 51 Year
  Sex: Female
  Weight: 67.12 kg

DRUGS (2)
  1. NEURONTIN [Suspect]
     Indication: PERIPHERAL NERVE INJURY
     Dosage: 600 MG, 3X/DAY
  2. GLUCOPHAGE [Concomitant]
     Indication: DIABETES MELLITUS
     Dosage: 1000 MG, UNK

REACTIONS (4)
  - Cardiac flutter [Unknown]
  - Pain in extremity [Unknown]
  - Drug ineffective [Unknown]
  - Neck pain [Unknown]
